FAERS Safety Report 16882227 (Version 1)
Quarter: 2019Q4

REPORT INFORMATION
  Report Type: Spontaneous
  Country: US (occurrence: US)
  Receive Date: 20191003
  Receipt Date: 20191003
  Transmission Date: 20200122
  Serious: Yes (Hospitalization)
  Sender: FDA-Public Use
  Company Number: None

PATIENT
  Age: 57 Year
  Sex: Male

DRUGS (22)
  1. KAPSPARGO [Concomitant]
     Active Substance: METOPROLOL SUCCINATE
  2. METOPROLOL TARTRATE. [Concomitant]
     Active Substance: METOPROLOL TARTRATE
  3. LANTUS [Concomitant]
     Active Substance: INSULIN GLARGINE
  4. PROCHLORPER [Concomitant]
  5. QUETIAPINE. [Concomitant]
     Active Substance: QUETIAPINE
  6. CONTOUR [Concomitant]
  7. HUMALOG [Concomitant]
     Active Substance: INSULIN LISPRO
  8. LEVOTHYROXIN [Concomitant]
     Active Substance: LEVOTHYROXINE
  9. NOVOLOG [Concomitant]
     Active Substance: INSULIN ASPART
  10. NIACIN. [Concomitant]
     Active Substance: NIACIN
  11. ASPIRIN. [Concomitant]
     Active Substance: ASPIRIN
  12. FAMOTIDINE. [Concomitant]
     Active Substance: FAMOTIDINE
  13. GLIPIZIDE. [Concomitant]
     Active Substance: GLIPIZIDE
  14. METFORMIN [Concomitant]
     Active Substance: METFORMIN HYDROCHLORIDE
  15. ZOLPIDEM [Concomitant]
     Active Substance: ZOLPIDEM TARTRATE
  16. NEULASTA [Suspect]
     Active Substance: PEGFILGRASTIM
     Indication: HODGKIN^S DISEASE
     Dosage: ?          OTHER FREQUENCY:1 DAY EVERY 21DAY;?
     Route: 058
     Dates: start: 20190904
  17. BASAGLAR [Concomitant]
     Active Substance: INSULIN GLARGINE
  18. LISINOPRIL AND HYDROCHLOROTHIAZIDE [Concomitant]
     Active Substance: HYDROCHLOROTHIAZIDE\LISINOPRIL
  19. CLONAZEPAM. [Concomitant]
     Active Substance: CLONAZEPAM
  20. DIVALPROEX [Concomitant]
     Active Substance: DIVALPROEX SODIUM
  21. PANTOPRAZOLE [Concomitant]
     Active Substance: PANTOPRAZOLE
  22. ROSUVASTATIN. [Concomitant]
     Active Substance: ROSUVASTATIN

REACTIONS (1)
  - Blood pressure decreased [None]

NARRATIVE: CASE EVENT DATE: 20190921
